FAERS Safety Report 12493769 (Version 2)
Quarter: 2016Q3

REPORT INFORMATION
  Report Type: Spontaneous
  Country: US (occurrence: US)
  Receive Date: 20160623
  Receipt Date: 20160817
  Transmission Date: 20161109
  Serious: No
  Sender: FDA-Public Use
  Company Number: US-PFIZER INC-2016289560

PATIENT
  Age: 60 Year
  Sex: Male
  Weight: 95.25 kg

DRUGS (3)
  1. LYRICA [Suspect]
     Active Substance: PREGABALIN
     Indication: BACK PAIN
     Dosage: TWO 75 MG IN THE MORNING AND THEN 8 HOURS APART, 75MG AND THEN AGAIN 8 HOURS LATER, ANOTHER 75MG
     Route: 048
  2. LYRICA [Suspect]
     Active Substance: PREGABALIN
     Dosage: UNK
  3. LYRICA [Suspect]
     Active Substance: PREGABALIN
     Dosage: 2 PILLS, 12 HOURS APART
     Route: 048
     Dates: start: 20160602

REACTIONS (2)
  - Intentional product use issue [Unknown]
  - Pain [Recovering/Resolving]

NARRATIVE: CASE EVENT DATE: 20160602
